FAERS Safety Report 8032356-5 (Version None)
Quarter: 2011Q4

REPORT INFORMATION
  Report Type: 
  Country: None (occurrence: None)
  Receive Date: 20111201
  Receipt Date: 20110414
  Transmission Date: 20120403
  Serious: Yes (Other)
  Sender: FDA-Public Use
  Company Number: 2011SP017228

PATIENT
  Age: 75 Year
  Sex: Female

DRUGS (1)
  1. NASONEX [Suspect]
     Indication: SEASONAL ALLERGY
     Dosage: 1 DF;HS;INH
     Route: 055
     Dates: start: 19910101

REACTIONS (3)
  - GLAUCOMA [None]
  - EPISTAXIS [None]
  - UNDERDOSE [None]
